FAERS Safety Report 23977824 (Version 1)
Quarter: 2024Q2

REPORT INFORMATION
  Report Type: Spontaneous
  Country: US (occurrence: US)
  Receive Date: 20240614
  Receipt Date: 20240614
  Transmission Date: 20240716
  Serious: No
  Sender: FDA-Public Use
  Company Number: ENDB24-00856

PATIENT
  Sex: Female

DRUGS (3)
  1. SUPPRELIN LA [Suspect]
     Active Substance: HISTRELIN ACETATE
     Indication: Pituitary gonadotropin hyperfunction
     Dosage: 50 MILLIGRAM, ONCE A YEAR
     Route: 058
  2. SUPPRELIN LA [Suspect]
     Active Substance: HISTRELIN ACETATE
     Indication: Pituitary gonadotropin hyperfunction
     Dosage: 50 MILLIGRAM, ONCE A YEAR
     Route: 058
  3. SUPPRELIN LA [Suspect]
     Active Substance: HISTRELIN ACETATE
     Indication: Pituitary gonadotropin hyperfunction
     Dosage: 50 MILLIGRAM, ONCE A YEAR
     Route: 058

REACTIONS (3)
  - Constipation [Not Recovered/Not Resolved]
  - Pyrexia [Unknown]
  - Headache [Unknown]
